FAERS Safety Report 9261712 (Version 1)
Quarter: 2013Q2

REPORT INFORMATION
  Report Type: Spontaneous
  Country: FR (occurrence: FR)
  Receive Date: 20130429
  Receipt Date: 20130429
  Transmission Date: 20140414
  Serious: Yes (Hospitalization, Other)
  Sender: FDA-Public Use
  Company Number: FR-PFIZER INC-2013126268

PATIENT
  Age: 87 Year
  Sex: Female

DRUGS (9)
  1. LYRICA [Suspect]
     Dosage: UNK
     Route: 048
  2. ORAMORPH [Interacting]
     Dosage: 3 GTT, 4X/DAY
     Route: 048
  3. ORAMORPH [Interacting]
     Dosage: 3 GTT, DAILY MAXIMUM
     Route: 048
  4. LAROXYL [Interacting]
     Dosage: 25 GTT, 1X/DAY
     Route: 048
     Dates: end: 20130325
  5. LASILIX [Concomitant]
     Dosage: 40 MG, 1X/DAY
     Route: 048
     Dates: end: 20130325
  6. APROVEL [Concomitant]
     Dosage: 150 MG, 1X/DAY
     Route: 048
     Dates: end: 20130325
  7. METOPROLOL [Concomitant]
     Dosage: 50 MG, 2X/DAY
     Route: 048
     Dates: end: 20130325
  8. PLAVIX [Concomitant]
     Dosage: 1 DF, 1X/DAY
     Route: 048
  9. ICAZ [Concomitant]
     Dosage: 5 MG, 1X/DAY
     Route: 048
     Dates: end: 20130325

REACTIONS (6)
  - Drug interaction [Recovered/Resolved]
  - Acidosis [Recovered/Resolved]
  - Hypercapnia [Recovered/Resolved]
  - Disturbance in attention [Recovered/Resolved]
  - Respiratory distress [Recovered/Resolved]
  - Renal failure acute [Unknown]
